FAERS Safety Report 23640151 (Version 1)
Quarter: 2024Q1

REPORT INFORMATION
  Report Type: Spontaneous
  Country: DK (occurrence: DK)
  Receive Date: 20240317
  Receipt Date: 20240317
  Transmission Date: 20240410
  Serious: Yes (Life-Threatening, Hospitalization)
  Sender: FDA-Public Use
  Company Number: None

PATIENT
  Age: 70 Year
  Sex: Female

DRUGS (2)
  1. CISPLATIN [Suspect]
     Active Substance: CISPLATIN
     Indication: Bladder cancer
     Dosage: STRENGTH: 1 MG/ML
     Dates: start: 20240206, end: 20240206
  2. GEMCITABINE [Suspect]
     Active Substance: GEMCITABINE
     Indication: Bladder cancer
     Dosage: STRENGTH: 40 MG/ML
     Dates: start: 20240206, end: 20240206

REACTIONS (7)
  - Atrial fibrillation [Unknown]
  - Middle cerebral artery stroke [Recovered/Resolved with Sequelae]
  - Cerebral artery occlusion [Recovered/Resolved with Sequelae]
  - Chest pain [Recovered/Resolved]
  - Atrial flutter [Unknown]
  - Acute myocardial infarction [Recovered/Resolved with Sequelae]
  - Facial paresis [Unknown]

NARRATIVE: CASE EVENT DATE: 20240206
